FAERS Safety Report 23302232 (Version 2)
Quarter: 2024Q1

REPORT INFORMATION
  Report Type: Spontaneous
  Country: US (occurrence: US)
  Receive Date: 20231215
  Receipt Date: 20240123
  Transmission Date: 20240410
  Serious: Yes (Death, Hospitalization, Other)
  Sender: FDA-Public Use
  Company Number: US-BRISTOL-MYERS SQUIBB COMPANY-2023-182095

PATIENT
  Age: 68 Year
  Sex: Male
  Weight: 71.21 kg

DRUGS (1)
  1. REVLIMID [Suspect]
     Active Substance: LENALIDOMIDE
     Indication: Plasma cell myeloma
     Dosage: 2WKSON,1OFF
     Route: 048
     Dates: start: 202311

REACTIONS (2)
  - Off label use [Unknown]
  - Necrotising fasciitis [Fatal]

NARRATIVE: CASE EVENT DATE: 20230101
